FAERS Safety Report 8115896-X (Version None)
Quarter: 2012Q1

REPORT INFORMATION
  Report Type: 
  Country: None (occurrence: None)
  Receive Date: 20120206
  Receipt Date: 20120131
  Transmission Date: 20120608
  Serious: Yes (Other)
  Sender: FDA-Public Use
  Company Number: US-PFIZER INC-2012026706

PATIENT
  Sex: Female
  Weight: 77.551 kg

DRUGS (2)
  1. NEURONTIN [Suspect]
     Indication: NEURALGIA
     Dosage: UNK, 3X/DAY
     Route: 048
     Dates: start: 20080101
  2. OXYCODONE [Concomitant]
     Dosage: UNK

REACTIONS (1)
  - AMNESIA [None]
